FAERS Safety Report 5528549-9 (Version None)
Quarter: 2007Q4

REPORT INFORMATION
  Report Type: 
  Country: None (occurrence: None)
  Receive Date: 20071121
  Receipt Date: 20071107
  Transmission Date: 20080405
  Serious: Yes (Hospitalization, Other)
  Sender: FDA-Public Use
  Company Number: DSA_30891_2007

PATIENT
  Sex: Male

DRUGS (9)
  1. BI-TILDIEM (BI-TILDIEM - DILTIAZEM HYDROCHLORIDE) 120 MG [Suspect]
     Indication: DRUG USE FOR UNKNOWN INDICATION
     Dosage: 120 MG BID ORAL
     Route: 048
     Dates: end: 20070927
  2. MEMANTINE HYDROCHLORIDE (MEMANTINE HYDROCHLORIDE) 10 MG [Suspect]
     Indication: DEMENTIA ALZHEIMER'S TYPE
     Dosage: 10 MG BID ORAL
     Route: 048
  3. IKOREL (IKOREL - NICORANDIL) 10 MG (NOT SPECIFIED) [Suspect]
     Indication: DRUG USE FOR UNKNOWN INDICATION
     Dosage: 10 MG BID ORAL
     Route: 048
     Dates: end: 20070927
  4. CRESTOR [Suspect]
     Indication: DRUG USE FOR UNKNOWN INDICATION
     Dosage: 20 MG QD ORAL
     Route: 048
     Dates: end: 20070927
  5. FLIXOTIDE (FLIXOTIDE DISKUS FLUTICASONE PROPIONATE) 500 UG (NOT SPECIF [Suspect]
     Indication: DRUG USE FOR UNKNOWN INDICATION
     Dosage: 500 UG BID RESPIRATORY (INHALATION)
     Route: 055
     Dates: end: 20070927
  6. NITRODERM [Concomitant]
  7. ASPIRIN [Concomitant]
  8. INIPOMP [Concomitant]
  9. ATORVASTATIN [Concomitant]

REACTIONS (6)
  - ACUTE CORONARY SYNDROME [None]
  - ANGINA PECTORIS [None]
  - ATRIOVENTRICULAR BLOCK COMPLETE [None]
  - ATRIOVENTRICULAR BLOCK SECOND DEGREE [None]
  - LEFT VENTRICULAR FAILURE [None]
  - TROPONIN INCREASED [None]
